FAERS Safety Report 6035036-0 (Version None)
Quarter: 2009Q1

REPORT INFORMATION
  Report Type: 
  Country: None (occurrence: None)
  Receive Date: 20090112
  Receipt Date: 20080319
  Transmission Date: 20090719
  Serious: No
  Sender: FDA-Public Use
  Company Number: US-ABBOTT-08P-163-0439225-00

PATIENT
  Age: 81 Year
  Sex: Female

DRUGS (2)
  1. NIMBEX [Suspect]
     Indication: SURGERY
     Route: 042
     Dates: start: 20080220, end: 20080220
  2. NIMBEX [Suspect]
     Route: 042

REACTIONS (1)
  - DRUG INEFFECTIVE [None]
